FAERS Safety Report 21868818 (Version 2)
Quarter: 2024Q2

REPORT INFORMATION
  Report Type: Other
  Country: US (occurrence: None)
  Receive Date: 20230117
  Receipt Date: 20240410
  Transmission Date: 20240716
  Serious: Yes (Hospitalization)
  Sender: FDA-Public Use
  Company Number: US-ROCHE-3231372

PATIENT
  Age: 46 Year
  Sex: Male
  Weight: 87.168 kg

DRUGS (5)
  1. OCREVUS [Suspect]
     Active Substance: OCRELIZUMAB
     Indication: Relapsing-remitting multiple sclerosis
     Dosage: THEN 600 MG EVERY 6 MONTHS, DATE OF TREATMENT: 26/FEB/2024
     Route: 042
     Dates: start: 20210920, end: 20211004
  2. OCREVUS [Suspect]
     Active Substance: OCRELIZUMAB
     Indication: Relapsing multiple sclerosis
     Route: 042
     Dates: start: 20220426
  3. OCREVUS [Suspect]
     Active Substance: OCRELIZUMAB
     Route: 042
     Dates: start: 2021, end: 20240226
  4. LISINOPRIL [Concomitant]
     Active Substance: LISINOPRIL
     Indication: Hypertension
     Route: 048
     Dates: start: 2021
  5. LEVETIRACETAM [Concomitant]
     Active Substance: LEVETIRACETAM

REACTIONS (7)
  - Seizure [Recovered/Resolved]
  - Memory impairment [Recovered/Resolved]
  - Personality change [Recovered/Resolved]
  - Cerebral disorder [Recovered/Resolved]
  - Blood potassium decreased [Unknown]
  - Hypersensitivity [Recovered/Resolved]
  - Throat tightness [Recovered/Resolved]

NARRATIVE: CASE EVENT DATE: 20220101
